FAERS Safety Report 5090858-8 (Version None)
Quarter: 2006Q3

REPORT INFORMATION
  Report Type: 
  Country: None (occurrence: None)
  Receive Date: 20060823
  Receipt Date: 20060811
  Transmission Date: 20061208
  Serious: Yes (Hospitalization)
  Sender: FDA-Public Use
  Company Number: 2006BI006892

PATIENT
  Age: 39 Year
  Sex: Female
  Weight: 67 kg

DRUGS (4)
  1. AVONEX [Suspect]
     Indication: MULTIPLE SCLEROSIS
     Dosage: SEE IMAGE
     Route: 030
     Dates: start: 20041201
  2. CORTISONE [Concomitant]
  3. PARACETAMOL [Concomitant]
  4. BELOC ZOK MITE [Concomitant]

REACTIONS (8)
  - ARRHYTHMIA [None]
  - BONE PAIN [None]
  - CHOLECYSTITIS [None]
  - CHOLELITHIASIS [None]
  - HEADACHE [None]
  - HYPERHIDROSIS [None]
  - NASOPHARYNGITIS [None]
  - PAIN IN EXTREMITY [None]
